FAERS Safety Report 20510156 (Version 7)
Quarter: 2022Q2

REPORT INFORMATION
  Report Type: Spontaneous
  Country: US (occurrence: US)
  Receive Date: 20220224
  Receipt Date: 20220401
  Transmission Date: 20220721
  Serious: Yes (Other)
  Sender: FDA-Public Use
  Company Number: US-UNITED THERAPEUTICS-UNT-2022-001586

PATIENT
  Age: 76 Year
  Sex: Female
  Weight: 47.166 kg

DRUGS (6)
  1. ORENITRAM [Suspect]
     Active Substance: TREPROSTINIL
     Indication: Pulmonary arterial hypertension
     Dosage: UNK
     Route: 048
     Dates: start: 20220112
  2. ORENITRAM [Suspect]
     Active Substance: TREPROSTINIL
     Dosage: 0.25 MG, BID
     Route: 048
  3. ORENITRAM [Suspect]
     Active Substance: TREPROSTINIL
     Dosage: 0.25 MG, TID
     Route: 048
  4. ORENITRAM [Suspect]
     Active Substance: TREPROSTINIL
     Indication: Pulmonary arterial hypertension
     Dosage: UNK
     Route: 048
  5. AMLODIPINE [Suspect]
     Active Substance: AMLODIPINE BESYLATE
     Indication: Product used for unknown indication
     Dosage: UNK
     Route: 065
  6. AMBRISENTAN [Concomitant]
     Active Substance: AMBRISENTAN
     Indication: Product used for unknown indication
     Dosage: UNK
     Route: 065

REACTIONS (16)
  - Bendopnoea [Unknown]
  - Head discomfort [Unknown]
  - Dry mouth [Unknown]
  - Dyspnoea [Unknown]
  - Dizziness postural [Unknown]
  - Dizziness [Recovered/Resolved]
  - Dyspnoea exertional [Not Recovered/Not Resolved]
  - Abdominal distension [Unknown]
  - Asthenia [Unknown]
  - Abdominal discomfort [Unknown]
  - Flatulence [Unknown]
  - Headache [Unknown]
  - Oxygen saturation decreased [Recovered/Resolved]
  - Feeling abnormal [Recovered/Resolved]
  - Dyspepsia [Unknown]
  - Inappropriate schedule of product administration [Unknown]

NARRATIVE: CASE EVENT DATE: 20220101
